FAERS Safety Report 10027790 (Version 1)
Quarter: 2014Q1

REPORT INFORMATION
  Report Type: Spontaneous
  Country: US (occurrence: US)
  Receive Date: 20140321
  Receipt Date: 20140321
  Transmission Date: 20141002
  Serious: Yes (Hospitalization, Other)
  Sender: FDA-Public Use
  Company Number: US-ABBVIE-14P-163-1213359-00

PATIENT
  Sex: 0

DRUGS (2)
  1. CREON [Suspect]
     Indication: PANCREATITIS
  2. DILAUDID [Concomitant]
     Indication: PAIN

REACTIONS (9)
  - Melaena [Unknown]
  - Lipase increased [Unknown]
  - Amylase increased [Unknown]
  - Pain [Unknown]
  - Vomiting [Unknown]
  - Cholelithiasis [Unknown]
  - Helicobacter infection [Unknown]
  - Ulcer [Unknown]
  - Weight decreased [Unknown]
